FAERS Safety Report 24435572 (Version 2)
Quarter: 2024Q4

REPORT INFORMATION
  Report Type: Spontaneous
  Country: FR (occurrence: FR)
  Receive Date: 20241015
  Receipt Date: 20241107
  Transmission Date: 20250114
  Serious: Yes (Life-Threatening, Hospitalization)
  Sender: NOVO NORDISK
  Company Number: None

PATIENT
  Age: 74 Year
  Sex: Male
  Weight: 120 kg

DRUGS (4)
  1. NOVOSEVEN [Suspect]
     Active Substance: COAGULATION FACTOR VIIA RECOMBINANT HUMAN
     Dosage: 9 MG, EVERY 6 HOUR
     Route: 042
     Dates: start: 20240829, end: 20240829
  2. NOVOSEVEN [Suspect]
     Active Substance: COAGULATION FACTOR VIIA RECOMBINANT HUMAN
     Indication: Acquired haemophilia
     Dosage: 9 MG, 6 TIMES DAILY(EVERY 4 HOURS)
     Route: 042
     Dates: start: 20240828, end: 20240828
  3. NOVOSEVEN [Suspect]
     Active Substance: COAGULATION FACTOR VIIA RECOMBINANT HUMAN
     Dosage: 9 MG, 6 TIMES DAILY(EVERY 4 HOURS)
     Route: 042
     Dates: start: 20240901, end: 20240902
  4. NOVOSEVEN [Suspect]
     Active Substance: COAGULATION FACTOR VIIA RECOMBINANT HUMAN
     Dosage: 9 MG, BID(EVERY 12 HOURS)
     Route: 042
     Dates: start: 20240830, end: 20240830

REACTIONS (1)
  - Ischaemic stroke [Recovering/Resolving]

NARRATIVE: CASE EVENT DATE: 20240902
